FAERS Safety Report 8338273-5 (Version None)
Quarter: 2012Q2

REPORT INFORMATION
  Report Type: 
  Country: None (occurrence: None)
  Receive Date: 20120504
  Receipt Date: 20120426
  Transmission Date: 20120825
  Serious: Yes (Other)
  Sender: FDA-Public Use
  Company Number: US-MERCK-1111USA03157

PATIENT
  Age: 72 Year
  Sex: Female

DRUGS (5)
  1. FOSAMAX PLUS D [Suspect]
     Indication: OSTEOPOROSIS
     Route: 048
     Dates: start: 19990601, end: 20110101
  2. FOSAMAX [Suspect]
     Indication: OSTEOPOROSIS
     Route: 048
  3. ACTONEL [Concomitant]
     Route: 065
     Dates: start: 20030101, end: 20100101
  4. BONIVA [Concomitant]
     Indication: OSTEOPOROSIS
     Route: 065
  5. FOSAMAX [Suspect]
     Route: 048
     Dates: start: 19990601, end: 20110101

REACTIONS (12)
  - FRACTURE NONUNION [None]
  - SEASONAL ALLERGY [None]
  - SLEEP DISORDER [None]
  - VITAMIN D DEFICIENCY [None]
  - ARTHRALGIA [None]
  - FEMUR FRACTURE [None]
  - GASTROOESOPHAGEAL REFLUX DISEASE [None]
  - HYPERTENSION [None]
  - INFECTION [None]
  - PAIN IN EXTREMITY [None]
  - BLOOD CHOLESTEROL INCREASED [None]
  - ANXIETY [None]
